FAERS Safety Report 10560804 (Version 1)
Quarter: 2014Q4

REPORT INFORMATION
  Report Type: Spontaneous
  Country: US (occurrence: None)
  Receive Date: 20141031
  Receipt Date: 20141031
  Transmission Date: 20150529
  Serious: No
  Sender: FDA-Public Use
  Company Number: None

PATIENT
  Sex: Male

DRUGS (1)
  1. ACETAMINOPHEN. [Suspect]
     Active Substance: ACETAMINOPHEN

REACTIONS (4)
  - Diarrhoea [None]
  - Product contamination microbial [None]
  - Nausea [None]
  - Product contamination physical [None]

NARRATIVE: CASE EVENT DATE: 20141027
